FAERS Safety Report 23972510 (Version 1)
Quarter: 2024Q2

REPORT INFORMATION
  Report Type: Spontaneous
  Country: US (occurrence: None)
  Receive Date: 20240613
  Receipt Date: 20240613
  Transmission Date: 20240715
  Serious: Yes (Death, Hospitalization)
  Sender: FDA-Public Use
  Company Number: None

PATIENT
  Age: 60 Year
  Sex: Male
  Weight: 81 kg

DRUGS (2)
  1. LAMOTRIGINE [Suspect]
     Active Substance: LAMOTRIGINE
     Indication: Anxiety
     Dosage: FREQUENCY : DAILY;?
     Route: 048
     Dates: start: 20231110, end: 20231211
  2. LAMOTRIGINE [Suspect]
     Active Substance: LAMOTRIGINE
     Indication: Depression

REACTIONS (13)
  - Haematological infection [None]
  - Stevens-Johnson syndrome [None]
  - Herpes simplex test positive [None]
  - COVID-19 [None]
  - Staphylococcal infection [None]
  - Urinary tract infection [None]
  - Diverticulitis [None]
  - Toxic epidermal necrolysis [None]
  - Haemophagocytic lymphohistiocytosis [None]
  - Skin burning sensation [None]
  - Dehydration [None]
  - Eating disorder [None]
  - Sepsis [None]

NARRATIVE: CASE EVENT DATE: 20231124
